FAERS Safety Report 6086618-1 (Version None)
Quarter: 2009Q1

REPORT INFORMATION
  Report Type: 
  Country: None (occurrence: None)
  Receive Date: 20090223
  Receipt Date: 20090210
  Transmission Date: 20090719
  Serious: Yes (Disabling)
  Sender: FDA-Public Use
  Company Number: FI-PFIZER INC-2009168550

PATIENT

DRUGS (11)
  1. LYRICA [Suspect]
     Indication: PAIN
     Dosage: 25 MG, 3X/DAY
     Route: 048
     Dates: start: 20081203, end: 20081217
  2. LOSEC MUPS [Concomitant]
     Dosage: 10 MG, 1X/DAY
     Route: 048
  3. METFOREM [Concomitant]
     Dosage: 500 MG, 6 TABLETS DAILY
     Route: 048
  4. BURANA [Concomitant]
     Dosage: 600 MG, 3 TABLETS DAILY
     Route: 048
  5. COZAAR [Concomitant]
     Dosage: LOSARTAN 100MG, HYDROCHLOROTHIAZIDE 25MG, 1 TABLET DAILY
     Route: 048
  6. VOLTAREN [Concomitant]
     Dosage: 50 MG, 3 TABLETS DAILY
     Route: 048
  7. DINIT [Concomitant]
     Dosage: 1-3 DOSES WHEN NEEDED
  8. SPESICOR DOS [Concomitant]
     Dosage: 47.5 MG, 2 TABLETS DAILY
     Route: 048
  9. DIGOXIN [Concomitant]
     Dosage: 0.25 MG, 1X/DAY
     Route: 048
  10. AMARYL [Concomitant]
     Dosage: 3 MG, 2.5 TABLETS DAILY
     Route: 048
  11. PANADOL FORTE [Concomitant]
     Dosage: 1 G, 3 TABLETS DAILY
     Route: 048

REACTIONS (21)
  - AGEUSIA [None]
  - ASTHENIA [None]
  - BACK PAIN [None]
  - BLOOD GLUCOSE INCREASED [None]
  - CHEST DISCOMFORT [None]
  - CHEST PAIN [None]
  - DIZZINESS [None]
  - DRY MOUTH [None]
  - FATIGUE [None]
  - FEELING DRUNK [None]
  - HEART SOUNDS ABNORMAL [None]
  - HYPERTENSION [None]
  - JOINT STIFFNESS [None]
  - MOVEMENT DISORDER [None]
  - NAUSEA [None]
  - PAIN IN EXTREMITY [None]
  - PRODUCTIVE COUGH [None]
  - SKIN ODOUR ABNORMAL [None]
  - SOMNOLENCE [None]
  - VISUAL IMPAIRMENT [None]
  - WEIGHT INCREASED [None]
